FAERS Safety Report 6114447-9 (Version None)
Quarter: 2009Q1

REPORT INFORMATION
  Report Type: 
  Country: None (occurrence: None)
  Receive Date: 20090313
  Receipt Date: 20090303
  Transmission Date: 20090719
  Serious: Yes (Other)
  Sender: FDA-Public Use
  Company Number: PHHY2009JP07984

PATIENT

DRUGS (4)
  1. DIOVAN [Suspect]
     Dosage: 80 MG, QD
     Route: 048
  2. NORVASC [Suspect]
     Dosage: 2.5 MG, QD
     Route: 048
  3. CARDENALIN [Concomitant]
     Route: 048
  4. EPLERENONE [Concomitant]
     Route: 048

REACTIONS (1)
  - TACHYCARDIA [None]
